FAERS Safety Report 7268418-X (Version None)
Quarter: 2011Q1

REPORT INFORMATION
  Report Type: 
  Country: None (occurrence: None)
  Receive Date: 20110201
  Receipt Date: 20110127
  Transmission Date: 20110831
  Serious: Yes (Disabling, Other)
  Sender: FDA-Public Use
  Company Number: US-PFIZER INC-2011020121

PATIENT
  Sex: Female
  Weight: 72.562 kg

DRUGS (1)
  1. CELEBREX [Suspect]
     Indication: ARTHRITIS
     Dosage: UNK
     Dates: start: 20050101

REACTIONS (3)
  - CARPAL TUNNEL SYNDROME [None]
  - SURGERY [None]
  - FIBROMYALGIA [None]
